FAERS Safety Report 20093121 (Version 5)
Quarter: 2022Q1

REPORT INFORMATION
  Report Type: Report from Study
  Country: MX (occurrence: MX)
  Receive Date: 20211120
  Receipt Date: 20220202
  Transmission Date: 20220423
  Serious: Yes (Other)
  Sender: FDA-Public Use
  Company Number: MX-NOVARTISPH-NVSC2021MX263985

PATIENT
  Sex: Female
  Weight: 82 kg

DRUGS (3)
  1. FEMARA [Suspect]
     Active Substance: LETROZOLE
     Indication: Breast cancer
     Dosage: 1 DOSAGE FORM (2.5 MG)
     Route: 048
     Dates: start: 2018
  2. EXFORGE [Suspect]
     Active Substance: AMLODIPINE BESYLATE\VALSARTAN
     Indication: Hypertension
     Dosage: 1 DOSAGE FORM, QD (165/5 MG)
     Route: 048
     Dates: start: 2017
  3. ROSUVASTATIN [Concomitant]
     Active Substance: ROSUVASTATIN
     Indication: Prophylaxis
     Dosage: 1 DOSAGE FORM (10 MG), AS NEEDED
     Route: 048

REACTIONS (16)
  - Poisoning [Unknown]
  - Deafness [Not Recovered/Not Resolved]
  - COVID-19 [Not Recovered/Not Resolved]
  - Influenza [Recovered/Resolved]
  - Influenza [Not Recovered/Not Resolved]
  - Gastrooesophageal reflux disease [Unknown]
  - Bronchitis [Recovered/Resolved]
  - Cough [Not Recovered/Not Resolved]
  - Hot flush [Not Recovered/Not Resolved]
  - Fatigue [Unknown]
  - Headache [Unknown]
  - Hypertension [Not Recovered/Not Resolved]
  - Weight increased [Not Recovered/Not Resolved]
  - Body temperature increased [Unknown]
  - Diarrhoea [Unknown]
  - Arthralgia [Unknown]

NARRATIVE: CASE EVENT DATE: 20180101
